FAERS Safety Report 4968309-0 (Version None)
Quarter: 2006Q2

REPORT INFORMATION
  Report Type: 
  Country: None (occurrence: None)
  Receive Date: 20060405
  Receipt Date: 20060321
  Transmission Date: 20061013
  Serious: Yes (Hospitalization)
  Sender: FDA-Public Use
  Company Number: VUSION0600004

PATIENT
  Age: 39 Year
  Sex: Male

DRUGS (1)
  1. VUSION [Suspect]
     Indication: DERMATITIS DIAPER
     Dosage: 150 G, SINGLE, ORAL
     Route: 048

REACTIONS (5)
  - BODY TEMPERATURE INCREASED [None]
  - CAUSTIC INJURY [None]
  - GASTRODUODENITIS [None]
  - INCORRECT ROUTE OF DRUG ADMINISTRATION [None]
  - INTENTIONAL DRUG MISUSE [None]
